FAERS Safety Report 5094819-4 (Version None)
Quarter: 2006Q3

REPORT INFORMATION
  Report Type: 
  Country: None (occurrence: None)
  Receive Date: 20060830
  Receipt Date: 20060830
  Transmission Date: 20061208
  Serious: Yes (Hospitalization)
  Sender: FDA-Public Use
  Company Number: None

PATIENT
  Sex: Male
  Weight: 24 kg

DRUGS (8)
  1. PEG-L-ASPARAGINASE (K-H) [Suspect]
     Dosage: 2125 IU  SEE IMAGE
  2. CYCLOPHOSPHAMIDE [Suspect]
     Dosage: 850 MG
  3. CYTARABINE [Suspect]
     Dosage: 512 MG
  4. DEXAMETHASONE TAB [Suspect]
     Dosage: 178.5 MG
  5. DOXORUBICIN HYDROCHLORIDE [Suspect]
     Dosage: 63 MG  SEE IMAGE
  6. METHOTREXATE [Suspect]
     Dosage: 30 MG  SEE IMAGE
  7. THIOGUANINE [Suspect]
     Dosage: 720 MG
  8. VINCRISTINE SULFATE [Suspect]
     Dosage: 3.9 MG

REACTIONS (2)
  - NEUTROPENIA [None]
  - PULMONARY EMBOLISM [None]
